FAERS Safety Report 8218115-9 (Version None)
Quarter: 2012Q1

REPORT INFORMATION
  Report Type: 
  Country: None (occurrence: None)
  Receive Date: 20120305
  Receipt Date: 20111107
  Transmission Date: 20120608
  Serious: No
  Sender: FDA-Public Use
  Company Number: 1000025283

PATIENT
  Age: 75 Year
  Sex: Female

DRUGS (10)
  1. ASPIRIN [Concomitant]
  2. VERAPAMIL [Concomitant]
  3. CRESTOR [Concomitant]
  4. LEVOTHYROXINE (LEVOTHYROXINE SODIUM) (LEVOTHYROXINE SODIUM) [Concomitant]
  5. DALIRESP [Suspect]
     Indication: CHRONIC OBSTRUCTIVE PULMONARY DISEASE
     Dosage: 500 MCG QOD (QOD),ORAL
     Route: 048
     Dates: start: 20111001, end: 20111001
  6. METOPROLOL SUCCINATE [Concomitant]
  7. NEXIUM [Concomitant]
  8. COZAAR [Concomitant]
  9. PLETAL (CILOSTAZOL) (CILOSTAZOL) [Concomitant]
  10. LOPID [Concomitant]

REACTIONS (2)
  - NAUSEA [None]
  - BLOOD PRESSURE INCREASED [None]
